FAERS Safety Report 11849136 (Version 1)
Quarter: 2015Q4

REPORT INFORMATION
  Report Type: Spontaneous
  Country: BR (occurrence: BR)
  Receive Date: 20151218
  Receipt Date: 20151218
  Transmission Date: 20160305
  Serious: Yes (Other)
  Sender: FDA-Public Use
  Company Number: BR-AMGEN-BRASP2015075326

PATIENT
  Age: 7 Year
  Sex: Female
  Weight: 35 kg

DRUGS (1)
  1. ENBREL [Suspect]
     Active Substance: ETANERCEPT
     Indication: JUVENILE IDIOPATHIC ARTHRITIS
     Dosage: 25 MG, 1X/WEEK
     Route: 065
     Dates: start: 20150709

REACTIONS (4)
  - Pain in extremity [Unknown]
  - Headache [Unknown]
  - Pyrexia [Unknown]
  - Amyloidosis [Unknown]

NARRATIVE: CASE EVENT DATE: 20150716
